FAERS Safety Report 8147265 (Version 2)
Quarter: 2012Q4

REPORT INFORMATION
  Report Type: 
  Country: TR (occurrence: TR)
  Receive Date: 20110922
  Receipt Date: 20121001
  Transmission Date: 20130627
  Serious: Yes (Death, Other)
  Sender: FDA-Public Use
  Company Number: TR-RANBAXY-2011R1-47697

PATIENT
  Age: 28 Year
  Sex: Male

DRUGS (2)
  1. RANITIDINE [Suspect]
     Indication: URTICARIA
     Dosage: UNK
     Route: 042
  2. PHENIRAMINE [Concomitant]
     Indication: URTICARIA
     Dosage: UNK
     Route: 042

REACTIONS (2)
  - Hypotension [Recovered/Resolved]
  - Bradycardia [Recovered/Resolved]
